FAERS Safety Report 9127881 (Version 2)
Quarter: 2014Q1

REPORT INFORMATION
  Report Type: Spontaneous
  Country: US (occurrence: US)
  Receive Date: 20130228
  Receipt Date: 20140228
  Transmission Date: 20141002
  Serious: Yes (Life-Threatening, Hospitalization, Disabling)
  Sender: FDA-Public Use
  Company Number: US-GLAXOSMITHKLINE-A1006489A

PATIENT
  Age: 9 Year
  Sex: Male

DRUGS (2)
  1. LAMICTAL [Suspect]
     Indication: CONVULSION
     Route: 065
     Dates: start: 20050111, end: 20050203
  2. DEPAKOTE [Concomitant]
     Indication: CONVULSION
     Route: 065
     Dates: start: 1999

REACTIONS (1)
  - Stevens-Johnson syndrome [Not Recovered/Not Resolved]
